FAERS Safety Report 15484707 (Version 1)
Quarter: 2018Q4

REPORT INFORMATION
  Report Type: Report from Study
  Country: US (occurrence: US)
  Receive Date: 20181010
  Receipt Date: 20181010
  Transmission Date: 20190205
  Serious: Yes (Death)
  Sender: FDA-Public Use
  Company Number: US-PFIZER INC-2018404866

PATIENT
  Age: 74 Year
  Sex: Male

DRUGS (8)
  1. VANCOMYCIN HCL [Suspect]
     Active Substance: VANCOMYCIN HYDROCHLORIDE
     Indication: BACTERAEMIA
     Dosage: UNK
  2. VANCOMYCIN HCL [Suspect]
     Active Substance: VANCOMYCIN HYDROCHLORIDE
     Indication: STOMATOCOCCAL INFECTION
  3. VANCOMYCIN HCL [Suspect]
     Active Substance: VANCOMYCIN HYDROCHLORIDE
     Indication: STAPHYLOCOCCAL BACTERAEMIA
  4. VANCOMYCIN HCL [Suspect]
     Active Substance: VANCOMYCIN HYDROCHLORIDE
     Indication: ESCHERICHIA INFECTION
  5. MEROPENEM. [Suspect]
     Active Substance: MEROPENEM
     Indication: BACTERAEMIA
     Dosage: UNK
  6. MEROPENEM. [Suspect]
     Active Substance: MEROPENEM
     Indication: ESCHERICHIA INFECTION
  7. MEROPENEM. [Suspect]
     Active Substance: MEROPENEM
     Indication: STOMATOCOCCAL INFECTION
  8. MEROPENEM. [Suspect]
     Active Substance: MEROPENEM
     Indication: STAPHYLOCOCCAL BACTERAEMIA

REACTIONS (1)
  - Drug ineffective [Fatal]
